FAERS Safety Report 9425916 (Version 2)
Quarter: 2013Q3

REPORT INFORMATION
  Report Type: Spontaneous
  Country: AT (occurrence: AT)
  Receive Date: 20130729
  Receipt Date: 20130801
  Transmission Date: 20140515
  Serious: Yes (Death)
  Sender: FDA-Public Use
  Company Number: AT-ASTRAZENECA-2013SE55997

PATIENT
  Sex: Female

DRUGS (2)
  1. PROPOFOL [Suspect]
     Indication: SEDATION
     Dosage: GENERIC
     Route: 042
  2. MIDAZOLAM [Suspect]
     Indication: SEDATION

REACTIONS (1)
  - Anaesthetic complication [Fatal]
